FAERS Safety Report 9936472 (Version 1)
Quarter: 2014Q1

REPORT INFORMATION
  Report Type: Spontaneous
  Country: US (occurrence: US)
  Receive Date: 20140228
  Receipt Date: 20140228
  Transmission Date: 20141002
  Serious: No
  Sender: FDA-Public Use
  Company Number: US-AMGEN-USASP2014004632

PATIENT
  Age: 43 Year
  Sex: Female
  Weight: 113.38 kg

DRUGS (1)
  1. ENBREL [Suspect]
     Indication: RHEUMATOID ARTHRITIS
     Dosage: 50 MG, QWK
     Route: 058

REACTIONS (8)
  - Allergy to plants [Unknown]
  - House dust allergy [Unknown]
  - Mycotic allergy [Unknown]
  - Seasonal allergy [Unknown]
  - Rubber sensitivity [Unknown]
  - Allergy to animal [Unknown]
  - Food allergy [Unknown]
  - Injection site pain [Unknown]
